FAERS Safety Report 8075133-1 (Version None)
Quarter: 2012Q1

REPORT INFORMATION
  Report Type: 
  Country: None (occurrence: None)
  Receive Date: 20120127
  Receipt Date: 20120120
  Transmission Date: 20120608
  Serious: Yes (Other)
  Sender: FDA-Public Use
  Company Number: US-BIOGENIDEC-2011BI034578

PATIENT
  Age: 55 Year
  Sex: Female

DRUGS (4)
  1. AVONEX [Suspect]
     Indication: MULTIPLE SCLEROSIS
     Route: 030
     Dates: start: 19960802, end: 20040101
  2. AVONEX [Suspect]
     Route: 030
     Dates: start: 20041201
  3. TYSABRI [Concomitant]
     Indication: MULTIPLE SCLEROSIS
     Route: 042
     Dates: start: 20041201, end: 20050201
  4. AVONEX [Suspect]
     Route: 030
     Dates: start: 20041201, end: 20041201

REACTIONS (2)
  - CARDIAC FAILURE [None]
  - PRURITUS [None]
